FAERS Safety Report 4389218-4 (Version None)
Quarter: 2004Q3

REPORT INFORMATION
  Report Type: 
  Country: None (occurrence: None)
  Receive Date: 20040701
  Receipt Date: 20040701
  Transmission Date: 20050211
  Serious: Yes (Hospitalization)
  Sender: FDA-Public Use
  Company Number: None

PATIENT
  Sex: Male
  Weight: 74.8435 kg

DRUGS (12)
  1. GEMCITABINE 100MG/ML ELI LILLY [Suspect]
     Indication: PANCREATIC CARCINOMA
     Dosage: 1000MG/M2 DAY 1 + 15 INTRAVENOUS
     Route: 042
     Dates: start: 20040401, end: 20040624
  2. CISPLATIN [Concomitant]
     Indication: PANCREATIC CARCINOMA
     Dosage: 20 MG/M2 DAY 1 +15
     Dates: start: 20040401, end: 20040624
  3. IRBESARTAN [Concomitant]
  4. ATENOLOL [Concomitant]
  5. FELODIPINE [Concomitant]
  6. AMARYL [Concomitant]
  7. GLUCOPHAGE [Concomitant]
  8. VICODIN [Concomitant]
  9. K-DUR 10 [Concomitant]
  10. LASIX [Concomitant]
  11. NACL [Concomitant]
  12. PANCREALIPASE [Concomitant]

REACTIONS (4)
  - ABDOMINAL PAIN [None]
  - HEPATIC MASS [None]
  - INFECTION [None]
  - PYREXIA [None]
